FAERS Safety Report 5588675-5 (Version None)
Quarter: 2008Q1

REPORT INFORMATION
  Report Type: 
  Country: None (occurrence: None)
  Receive Date: 20080111
  Receipt Date: 20080107
  Transmission Date: 20080703
  Serious: Yes (Hospitalization, Congenital Anomaly)
  Sender: FDA-Public Use
  Company Number: A0682774A

PATIENT
  Sex: Male

DRUGS (3)
  1. PAXIL [Suspect]
     Indication: DRUG USE FOR UNKNOWN INDICATION
  2. PRENATAL VITAMINS [Concomitant]
     Dates: start: 19950101
  3. FOLIC ACID [Concomitant]

REACTIONS (27)
  - AORTIC VALVE INCOMPETENCE [None]
  - ATRIAL SEPTAL DEFECT [None]
  - BLOOD GLUCOSE FLUCTUATION [None]
  - CARDIAC MURMUR [None]
  - CARDIOMEGALY [None]
  - CEPHALHAEMATOMA [None]
  - COARCTATION OF THE AORTA [None]
  - CYANOSIS [None]
  - DILATATION VENTRICULAR [None]
  - DOUBLE OUTLET RIGHT VENTRICLE [None]
  - DRUG EXPOSURE DURING PREGNANCY [None]
  - HYPERTENSION [None]
  - HYPOXIA [None]
  - LEFT ATRIAL DILATATION [None]
  - MITRAL VALVE INCOMPETENCE [None]
  - MULTIPLE CARDIAC DEFECTS [None]
  - PAIN IN EXTREMITY [None]
  - PATENT DUCTUS ARTERIOSUS [None]
  - PERIPHERAL COLDNESS [None]
  - PLAGIOCEPHALY [None]
  - PLEURAL EFFUSION [None]
  - POOR PERIPHERAL CIRCULATION [None]
  - PULMONARY VALVE STENOSIS [None]
  - TACHYPNOEA [None]
  - TRANSPOSITION OF THE GREAT VESSELS [None]
  - TRICUSPID VALVE INCOMPETENCE [None]
  - VENTRICULAR SEPTAL DEFECT [None]
